FAERS Safety Report 8232616-9 (Version None)
Quarter: 2012Q1

REPORT INFORMATION
  Report Type: 
  Country: None (occurrence: None)
  Receive Date: 20120323
  Receipt Date: 20120308
  Transmission Date: 20120608
  Serious: Yes (Hospitalization)
  Sender: FDA-Public Use
  Company Number: CHPA2012US004825

PATIENT
  Sex: Male

DRUGS (1)
  1. GAS-X [Suspect]
     Indication: FLATULENCE
     Dosage: AS DIRECTED
     Route: 048

REACTIONS (3)
  - DYSPHAGIA [None]
  - RENAL FAILURE [None]
  - BURN OF INTERNAL ORGANS [None]
